FAERS Safety Report 4493974-4 (Version None)
Quarter: 2004Q4

REPORT INFORMATION
  Report Type: 
  Country: None (occurrence: None)
  Receive Date: 20041102
  Receipt Date: 20041019
  Transmission Date: 20050328
  Serious: Yes (Hospitalization, Other)
  Sender: FDA-Public Use
  Company Number: USA041081705

PATIENT
  Age: 85 Year
  Sex: Male

DRUGS (4)
  1. HUMULIN R [Suspect]
     Dates: end: 20030101
  2. HUMULIN N [Suspect]
     Dates: end: 20030101
  3. LANTUS [Concomitant]
  4. HUMALOG [Suspect]

REACTIONS (2)
  - BLOOD GLUCOSE INCREASED [None]
  - PANCREATICODUODENECTOMY [None]
